FAERS Safety Report 14405502 (Version 2)
Quarter: 2018Q1

REPORT INFORMATION
  Report Type: Spontaneous
  Country: US (occurrence: US)
  Receive Date: 20180118
  Receipt Date: 20180131
  Transmission Date: 20180509
  Serious: Yes (Hospitalization, Other)
  Sender: FDA-Public Use
  Company Number: US-PFIZER INC-2018022647

PATIENT
  Age: 65 Year
  Sex: Female
  Weight: 77.11 kg

DRUGS (4)
  1. PRIMIDONE. [Concomitant]
     Active Substance: PRIMIDONE
     Indication: ESSENTIAL TREMOR
     Dosage: UNK
  2. LYRICA [Suspect]
     Active Substance: PREGABALIN
     Indication: SEIZURE
  3. PRIMIDONE. [Concomitant]
     Active Substance: PRIMIDONE
     Indication: SEIZURE
  4. LYRICA [Suspect]
     Active Substance: PREGABALIN
     Indication: FIBROMYALGIA
     Dosage: 75 MG, 2X/DAY
     Route: 048

REACTIONS (7)
  - Chest pain [Not Recovered/Not Resolved]
  - Heart rate abnormal [Recovered/Resolved]
  - Arrhythmia [Recovered/Resolved]
  - Discomfort [Unknown]
  - Lower limb fracture [Unknown]
  - Coronary artery occlusion [Unknown]
  - Fall [Unknown]

NARRATIVE: CASE EVENT DATE: 20170710
